FAERS Safety Report 15927437 (Version 2)
Quarter: 2019Q1

REPORT INFORMATION
  Report Type: Spontaneous
  Country: US (occurrence: US)
  Receive Date: 20190205
  Receipt Date: 20190219
  Transmission Date: 20190417
  Serious: No
  Sender: FDA-Public Use
  Company Number: US-ALLERGAN-1854334US

PATIENT

DRUGS (1)
  1. BOTOX [Suspect]
     Active Substance: ONABOTULINUMTOXINA
     Indication: FACE LIFT
     Dosage: UNK UNK, SINGLE
     Route: 030

REACTIONS (2)
  - Off label use [Unknown]
  - Vision blurred [Not Recovered/Not Resolved]
